FAERS Safety Report 8837079 (Version 1)
Quarter: 2012Q4

REPORT INFORMATION
  Report Type: 
  Country: SE (occurrence: SE)
  Receive Date: 20121011
  Receipt Date: 20121011
  Transmission Date: 20130627
  Serious: Yes (Other)
  Sender: FDA-Public Use
  Company Number: CHPA2012SE021322

PATIENT
  Sex: Female

DRUGS (1)
  1. SCOPODERM TTS [Suspect]
     Indication: NAUSEA
     Dosage: Unk, For 4 months
     Route: 062

REACTIONS (3)
  - Drug dependence [Unknown]
  - Off label use [Unknown]
  - Therapeutic response unexpected [Unknown]
